FAERS Safety Report 5060608-X (Version None)
Quarter: 2006Q3

REPORT INFORMATION
  Report Type: 
  Country: None (occurrence: None)
  Receive Date: 20060725
  Receipt Date: 20060714
  Transmission Date: 20061208
  Serious: Yes (Hospitalization)
  Sender: FDA-Public Use
  Company Number: PHBS2006CH10470

PATIENT
  Age: 75 Year
  Sex: Female

DRUGS (15)
  1. NITRODERM [Suspect]
     Dosage: 10 MG/DAY
     Route: 062
     Dates: start: 20060324, end: 20060326
  2. NITRODERM [Suspect]
     Dosage: 10 MG/DAY
     Route: 062
     Dates: start: 20060405, end: 20060429
  3. PERLINGANIT [Suspect]
     Route: 042
     Dates: start: 20060327, end: 20060329
  4. TRAMADOL HCL [Suspect]
     Dosage: UNK, UNK
     Dates: start: 20060324, end: 20060406
  5. TRAMADOL HCL [Suspect]
     Dosage: 50 MG, TID
     Dates: end: 20060406
  6. DILZEM [Suspect]
     Dosage: 120 MG, BID
     Dates: start: 20060331
  7. MYSOLINE [Suspect]
     Dosage: 250 MG, TID
  8. VALPROIC ACID [Suspect]
     Dosage: 500 MG, TID
  9. VITARUBIN [Concomitant]
     Dosage: 1 MG/WEEK
  10. OXAZEPAM [Concomitant]
     Dosage: 7.5 MG/DAY
     Dates: start: 20060318
  11. DAFALGAN [Concomitant]
     Dosage: 1 G, TID
     Dates: start: 20060324
  12. COVERSUM COMBI [Concomitant]
     Dosage: 2 TABLETS/DAY
     Dates: start: 20060328
  13. TEMESTA [Concomitant]
     Dosage: UNK, PRN
  14. PHYSIOTENS [Concomitant]
     Dosage: UNK, PRN
  15. VENTOLIN [Concomitant]
     Dosage: UNK, PRN

REACTIONS (4)
  - DRUG INTERACTION [None]
  - FRACTURE [None]
  - HYPERTENSION [None]
  - INJURY [None]
